FAERS Safety Report 24328842 (Version 1)
Quarter: 2024Q3

REPORT INFORMATION
  Report Type: Other
  Country: FR (occurrence: FR)
  Receive Date: 20240917
  Receipt Date: 20240917
  Transmission Date: 20241016
  Serious: Yes (Death)
  Sender: INCYTE
  Company Number: None

PATIENT

DRUGS (3)
  1. TAFASITAMAB [Interacting]
     Active Substance: TAFASITAMAB
     Indication: Lymphoma
     Dosage: 990 MILLIGRAM, WEEKLY
     Route: 042
     Dates: start: 20230331, end: 20230602
  2. LENALIDOMIDE [Interacting]
     Active Substance: LENALIDOMIDE
     Indication: Lymphoma
     Dosage: ONE PER DAY FOR 21 DAYS WITH ONE-WEEK BREAK
     Route: 048
     Dates: start: 20230331, end: 20230615
  3. METHYLPREDNISOLONE [Interacting]
     Active Substance: METHYLPREDNISOLONE
     Indication: Lymphoma
     Dosage: 120 MILLIGRAM, WEEKLY
     Route: 042
     Dates: start: 20230331, end: 20230602

REACTIONS (2)
  - Drug interaction [Fatal]
  - Sepsis [Fatal]

NARRATIVE: CASE EVENT DATE: 20230331
